FAERS Safety Report 6427313-6 (Version None)
Quarter: 2009Q4

REPORT INFORMATION
  Report Type: 
  Country: None (occurrence: None)
  Receive Date: 20091104
  Receipt Date: 20091029
  Transmission Date: 20100525
  Serious: Yes (Hospitalization)
  Sender: FDA-Public Use
  Company Number: Z0001699A

PATIENT
  Age: 12 Year
  Sex: Male
  Weight: 50.9 kg

DRUGS (3)
  1. LAMOTRIGINE [Suspect]
     Indication: BIPOLAR I DISORDER
     Route: 048
     Dates: start: 20090602, end: 20090909
  2. FOCALIN [Concomitant]
     Indication: ATTENTION DEFICIT/HYPERACTIVITY DISORDER
     Dosage: 20MG PER DAY
     Route: 048
     Dates: start: 20081004
  3. ABILIFY [Concomitant]
     Dosage: 5MG PER DAY
     Route: 048
     Dates: start: 20090204

REACTIONS (3)
  - AGITATION [None]
  - IRRITABILITY [None]
  - PRESSURE OF SPEECH [None]
